FAERS Safety Report 10018351 (Version 2)
Quarter: 2014Q2

REPORT INFORMATION
  Report Type: Report from Study
  Country: US (occurrence: US)
  Receive Date: 20140318
  Receipt Date: 20140403
  Transmission Date: 20141212
  Serious: Yes (Other)
  Sender: FDA-Public Use
  Company Number: US-ROCHE-1361307

PATIENT
  Sex: Male

DRUGS (2)
  1. XELODA [Suspect]
     Indication: COLON CANCER
     Dosage: 4 PILLS IN THE MORNING, 4 PILLS AT NIGHT
     Route: 065
     Dates: start: 20131220, end: 20140224
  2. REVLIMID [Concomitant]
     Route: 065

REACTIONS (3)
  - Plasma cell myeloma [Unknown]
  - Burning sensation [Unknown]
  - Diarrhoea [Unknown]
